FAERS Safety Report 7229586-9 (Version None)
Quarter: 2011Q1

REPORT INFORMATION
  Report Type: 
  Country: None (occurrence: None)
  Receive Date: 20110117
  Receipt Date: 20100817
  Transmission Date: 20110831
  Serious: No
  Sender: FDA-Public Use
  Company Number: US-TYCO HEALTHCARE/MALLINCKRODT-T201001832

PATIENT
  Sex: Male
  Weight: 72.562 kg

DRUGS (1)
  1. OPTIRAY 350 [Suspect]
     Indication: COMPUTERISED TOMOGRAM
     Dosage: 110 ML, SINGLE
     Route: 042
     Dates: start: 20090416, end: 20090416

REACTIONS (2)
  - EYE PRURITUS [None]
  - OCULAR HYPERAEMIA [None]
